FAERS Safety Report 6677478-6 (Version None)
Quarter: 2010Q2

REPORT INFORMATION
  Report Type: 
  Country: None (occurrence: None)
  Receive Date: 20100412
  Receipt Date: 20100402
  Transmission Date: 20101027
  Serious: Yes (Hospitalization)
  Sender: FDA-Public Use
  Company Number: B0636489A

PATIENT
  Sex: Male

DRUGS (3)
  1. ZINNAT [Suspect]
     Indication: PERIODONTITIS
     Dosage: 750MG PER DAY
     Route: 048
     Dates: start: 20100223, end: 20100225
  2. LORCAM [Concomitant]
     Indication: ANALGESIC INTERVENTION SUPPORTIVE THERAPY
     Dosage: 12MG PER DAY
     Route: 048
     Dates: start: 20100223, end: 20100225
  3. UNKNOWN DRUG [Concomitant]
     Route: 065

REACTIONS (2)
  - DRUG ERUPTION [None]
  - DYSPNOEA [None]
